FAERS Safety Report 9084271 (Version 1)
Quarter: 2013Q1

REPORT INFORMATION
  Report Type: Report from Study
  Country: US (occurrence: US)
  Receive Date: 20130131
  Receipt Date: 20130131
  Transmission Date: 20140127
  Serious: No
  Sender: FDA-Public Use
  Company Number: US-ABBOTT-12P-163-1001151-00

PATIENT
  Sex: Male
  Weight: 107.14 kg

DRUGS (7)
  1. HUMIRA [Suspect]
     Indication: ANKYLOSING SPONDYLITIS
     Dates: start: 2010, end: 201207
  2. HUMIRA [Suspect]
     Indication: PSORIASIS
     Dates: start: 20121012
  3. COREG [Concomitant]
     Indication: HYPERTENSION
  4. CALCIUM [Concomitant]
     Indication: MINERAL SUPPLEMENTATION
  5. METFORMIN [Concomitant]
     Indication: DIABETES MELLITUS
  6. ATORVASTATIN [Concomitant]
     Indication: BLOOD CHOLESTEROL INCREASED
  7. ACTONEL [Concomitant]
     Indication: OSTEOPOROSIS

REACTIONS (3)
  - Neck pain [Recovered/Resolved]
  - Arthralgia [Recovered/Resolved]
  - Arthralgia [Recovered/Resolved]
